FAERS Safety Report 11873463 (Version 1)
Quarter: 2015Q4

REPORT INFORMATION
  Report Type: Spontaneous
  Country: US (occurrence: US)
  Receive Date: 20151228
  Receipt Date: 20151228
  Transmission Date: 20160305
  Serious: Yes (Other)
  Sender: FDA-Public Use
  Company Number: US-B.I. PHARMACEUTICALS,INC./RIDGEFIELD-2015-BI-71629BP

PATIENT
  Sex: Male

DRUGS (1)
  1. DULCOLAX STOOL SOFTENER [Suspect]
     Active Substance: DOCUSATE SODIUM
     Indication: FAECES HARD
     Route: 048

REACTIONS (4)
  - Nausea [Unknown]
  - Colon cancer [Unknown]
  - Rectal fissure [Unknown]
  - Rectal haemorrhage [Unknown]
